FAERS Safety Report 7609905-1 (Version None)
Quarter: 2011Q3

REPORT INFORMATION
  Report Type: 
  Country: None (occurrence: None)
  Receive Date: 20110714
  Receipt Date: 20110705
  Transmission Date: 20111222
  Serious: Yes (Hospitalization, Other)
  Sender: FDA-Public Use
  Company Number: FR-ELI_LILLY_AND_COMPANY-FR201107000632

PATIENT
  Sex: Male

DRUGS (8)
  1. PERINDOPRIL ERBUMINE [Concomitant]
     Indication: HYPERTENSION
     Dosage: 8 MG, QD
     Route: 048
  2. HUMALOG [Suspect]
     Dosage: 14 IU, QD
     Route: 058
  3. HUMALOG [Suspect]
     Dosage: 20 IU, QD
     Route: 058
  4. LANTUS [Concomitant]
     Indication: DIABETES MELLITUS
     Dosage: 36 IU, QD
     Route: 058
     Dates: start: 20060701, end: 20110501
  5. ATORVASTATIN CALCIUM [Concomitant]
     Indication: HYPERCHOLESTEROLAEMIA
     Dosage: 40 MG, QD
     Route: 048
  6. HUMALOG [Suspect]
     Indication: DIABETES MELLITUS
     Dosage: 8 IU, QD
     Route: 058
  7. INDOCOLLYRE [Concomitant]
     Dosage: 2 DF, QD
     Route: 047
  8. LEVEMIR [Concomitant]

REACTIONS (1)
  - BASAL CELL CARCINOMA [None]
